FAERS Safety Report 17573585 (Version 1)
Quarter: 2020Q1

REPORT INFORMATION
  Report Type: Spontaneous
  Country: DE (occurrence: DE)
  Receive Date: 20200323
  Receipt Date: 20200323
  Transmission Date: 20200409
  Serious: Yes (Other)
  Sender: FDA-Public Use
  Company Number: DE-JNJFOC-20200315017

PATIENT
  Sex: Male

DRUGS (3)
  1. POTASSIUM [Concomitant]
     Active Substance: POTASSIUM
  2. CANDESARTAN. [Concomitant]
     Active Substance: CANDESARTAN
  3. RIVAROXABAN [Suspect]
     Active Substance: RIVAROXABAN
     Indication: PRODUCT USED FOR UNKNOWN INDICATION
     Route: 048

REACTIONS (2)
  - Drug ineffective [Unknown]
  - Pulmonary embolism [Unknown]
